FAERS Safety Report 15492563 (Version 1)
Quarter: 2018Q4

REPORT INFORMATION
  Report Type: Report from Study
  Country: JP (occurrence: JP)
  Receive Date: 20181012
  Receipt Date: 20181012
  Transmission Date: 20190205
  Serious: Yes (Other)
  Sender: FDA-Public Use
  Company Number: JP-ROCHE-2199317

PATIENT
  Sex: Female

DRUGS (1)
  1. BEVACIZUMAB. [Suspect]
     Active Substance: BEVACIZUMAB
     Indication: OVARIAN CANCER
     Route: 042

REACTIONS (5)
  - Acute kidney injury [Unknown]
  - Hypertension [Unknown]
  - Proteinuria [Unknown]
  - Anaemia [Unknown]
  - Thrombocytopenia [Unknown]
